FAERS Safety Report 9532718 (Version 2)
Quarter: 2013Q3

REPORT INFORMATION
  Report Type: Spontaneous
  Country: US (occurrence: US)
  Receive Date: 20130918
  Receipt Date: 20130918
  Transmission Date: 20140515
  Serious: Yes (Other)
  Sender: FDA-Public Use
  Company Number: US-NAPPMUNDI-USA-2011-0073781

PATIENT
  Sex: Female
  Weight: 181.41 kg

DRUGS (2)
  1. BUTRANS [Suspect]
     Indication: PAIN
     Dosage: 10 MCG/HR, DAILY
     Route: 062
     Dates: end: 20110814
  2. BUTRANS [Suspect]
     Dosage: 20 MCG/HR, DAILY
     Route: 062
     Dates: start: 20110814, end: 20110816

REACTIONS (7)
  - Dyspnoea [Recovered/Resolved]
  - Cold sweat [Recovering/Resolving]
  - Extra dose administered [Recovering/Resolving]
  - Mobility decreased [Recovering/Resolving]
  - Fatigue [Recovered/Resolved]
  - Hyperhidrosis [Recovered/Resolved]
  - Asthenia [Recovered/Resolved]
